FAERS Safety Report 21060240 (Version 3)
Quarter: 2023Q2

REPORT INFORMATION
  Report Type: Spontaneous
  Country: US (occurrence: US)
  Receive Date: 20220708
  Receipt Date: 20230606
  Transmission Date: 20230722
  Serious: Yes (Hospitalization)
  Sender: FDA-Public Use
  Company Number: US-SA-SAC20220705001141

PATIENT
  Age: 68 Year
  Sex: Female

DRUGS (1)
  1. DUPIXENT [Suspect]
     Active Substance: DUPILUMAB
     Indication: Dermatitis atopic
     Dosage: 300 MG, QOW
     Route: 058
     Dates: start: 20201205

REACTIONS (8)
  - Chronic obstructive pulmonary disease [Unknown]
  - Bronchitis viral [Unknown]
  - Metapneumovirus infection [Unknown]
  - Wheezing [Unknown]
  - Bronchospasm [Unknown]
  - Dyspnoea [Unknown]
  - Illness [Unknown]
  - Dyspnoea [Unknown]

NARRATIVE: CASE EVENT DATE: 20230327
